FAERS Safety Report 6565730-4 (Version None)
Quarter: 2010Q1

REPORT INFORMATION
  Report Type: 
  Country: None (occurrence: None)
  Receive Date: 20100201
  Receipt Date: 20090216
  Transmission Date: 20100710
  Serious: Yes (Hospitalization)
  Sender: FDA-Public Use
  Company Number: US-ABBOTT-09P-163-0502659-00

PATIENT
  Sex: Male
  Weight: 98.518 kg

DRUGS (3)
  1. LUPRON DEPOT [Suspect]
     Indication: PROSTATE CANCER
     Route: 030
     Dates: start: 20081015
  2. ANACIN [Concomitant]
     Indication: BACK PAIN
  3. ANACIN [Concomitant]
     Indication: PAIN IN EXTREMITY

REACTIONS (6)
  - ANXIETY [None]
  - DYSPNOEA [None]
  - HOT FLUSH [None]
  - HYPERHIDROSIS [None]
  - INSOMNIA [None]
  - MOOD SWINGS [None]
